FAERS Safety Report 23140551 (Version 5)
Quarter: 2024Q1

REPORT INFORMATION
  Report Type: Spontaneous
  Country: JP (occurrence: JP)
  Receive Date: 20231102
  Receipt Date: 20240215
  Transmission Date: 20240410
  Serious: Yes (Hospitalization, Other)
  Sender: FDA-Public Use
  Company Number: JP-SCALL-2023-JP-121370

PATIENT
  Age: 73 Year
  Sex: Male

DRUGS (5)
  1. DUTASTERIDE [Suspect]
     Active Substance: DUTASTERIDE
     Indication: Benign prostatic hyperplasia
     Dosage: 0.5 MG, 1D
     Route: 048
     Dates: start: 20230113
  2. HARNAL [Concomitant]
     Active Substance: TAMSULOSIN HYDROCHLORIDE
     Indication: Benign prostatic hyperplasia
     Dosage: 0.2 MG
     Route: 065
     Dates: start: 20171225, end: 20180204
  3. MIRABEGRON [Concomitant]
     Active Substance: MIRABEGRON
     Dosage: 25 MG
     Route: 065
     Dates: start: 20180110
  4. MIRABEGRON [Concomitant]
     Active Substance: MIRABEGRON
     Dosage: 50 MG
     Route: 065
     Dates: start: 20180131
  5. SILODOSIN [Concomitant]
     Active Substance: SILODOSIN
     Indication: Benign prostatic hyperplasia
     Dosage: 4 MG
     Route: 048
     Dates: start: 20180204

REACTIONS (3)
  - Bile duct cancer [Unknown]
  - Weight gain poor [Unknown]
  - Weight decreased [Unknown]

NARRATIVE: CASE EVENT DATE: 20230327
